FAERS Safety Report 24987017 (Version 1)
Quarter: 2025Q1

REPORT INFORMATION
  Report Type: Spontaneous
  Country: CA (occurrence: CA)
  Receive Date: 20250219
  Receipt Date: 20250219
  Transmission Date: 20250409
  Serious: Yes (Other)
  Sender: GRANULES PHARMACEUTICALS INC
  Company Number: CA-GRANULES-CA-2025GRALIT00064

PATIENT
  Age: 39 Year
  Sex: Female

DRUGS (3)
  1. ACETAMINOPHEN [Suspect]
     Active Substance: ACETAMINOPHEN
     Indication: Product used for unknown indication
     Route: 045
  2. ACETAMINOPHEN [Suspect]
     Active Substance: ACETAMINOPHEN
     Route: 045
  3. PERCOCET [Concomitant]
     Active Substance: ACETAMINOPHEN\OXYCODONE HYDROCHLORIDE
     Indication: Product used for unknown indication
     Route: 045

REACTIONS (11)
  - Nasal necrosis [Recovered/Resolved]
  - Drug abuse [Unknown]
  - Sinus pain [Recovered/Resolved]
  - Nasal congestion [Recovered/Resolved]
  - Anosmia [Recovered/Resolved]
  - Rhinorrhoea [Recovered/Resolved]
  - Oropharyngeal discomfort [Recovered/Resolved]
  - Odynophagia [Recovered/Resolved]
  - Nasal crusting [Recovered/Resolved]
  - Rhinalgia [Recovered/Resolved]
  - Nasal septum perforation [Recovered/Resolved]
